FAERS Safety Report 16344716 (Version 1)
Quarter: 2019Q2

REPORT INFORMATION
  Report Type: Report from Study
  Country: BR (occurrence: BR)
  Receive Date: 20190522
  Receipt Date: 20190522
  Transmission Date: 20190711
  Serious: Yes (Disabling, Other)
  Sender: FDA-Public Use
  Company Number: PHHY2018BR003703

PATIENT
  Sex: Female

DRUGS (1)
  1. ACLASTA [Suspect]
     Active Substance: ZOLEDRONIC ACID
     Indication: PRODUCT USED FOR UNKNOWN INDICATION
     Dosage: UNK
     Route: 065
     Dates: start: 2017

REACTIONS (11)
  - Feeling abnormal [Unknown]
  - Gait inability [Unknown]
  - Pain [Not Recovered/Not Resolved]
  - Spinal disorder [Unknown]
  - Osteoporosis [Unknown]
  - Drug ineffective [Unknown]
  - Dysstasia [Unknown]
  - Musculoskeletal discomfort [Unknown]
  - Balance disorder [Unknown]
  - Joint injury [Unknown]
  - Osteopenia [Unknown]
